FAERS Safety Report 6815230-9 (Version None)
Quarter: 2010Q3

REPORT INFORMATION
  Report Type: 
  Country: None (occurrence: None)
  Receive Date: 20100701
  Receipt Date: 20100701
  Transmission Date: 20110219
  Serious: Yes (Hospitalization)
  Sender: FDA-Public Use
  Company Number: None

PATIENT
  Sex: Female
  Weight: 64 kg

DRUGS (4)
  1. BEVACIZUMAB (RHUMAB VEGF) [Suspect]
     Dosage: 350 MG
  2. LEUCOVORIN CALCIUM [Suspect]
     Dosage: 1440 MG
  3. ELOXATIN [Suspect]
     Dosage: 300 MG
  4. FLUOROURACIL [Suspect]
     Dosage: 10040 MG

REACTIONS (5)
  - COLITIS [None]
  - DIVERTICULITIS [None]
  - INTESTINAL PERFORATION [None]
  - RESPIRATORY ALKALOSIS [None]
  - SEPTIC SHOCK [None]
